FAERS Safety Report 20384537 (Version 1)
Quarter: 2022Q1

REPORT INFORMATION
  Report Type: Spontaneous
  Country: US (occurrence: US)
  Receive Date: 20220127
  Receipt Date: 20220127
  Transmission Date: 20220423
  Serious: No
  Sender: FDA-Public Use
  Company Number: US-NOVAST LABORATORIES INC.-2021NOV000295

PATIENT

DRUGS (1)
  1. MICROGESTIN 1/20 [Suspect]
     Active Substance: ETHINYL ESTRADIOL\NORETHINDRONE ACETATE
     Indication: Product used for unknown indication
     Dosage: UNK
     Route: 065
     Dates: start: 20210725

REACTIONS (3)
  - Dyspareunia [Unknown]
  - Tachycardia [Recovered/Resolved]
  - Alcohol interaction [Unknown]

NARRATIVE: CASE EVENT DATE: 20210725
